FAERS Safety Report 5921411-9 (Version None)
Quarter: 2008Q4

REPORT INFORMATION
  Report Type: 
  Country: None (occurrence: None)
  Receive Date: 20081014
  Receipt Date: 20081001
  Transmission Date: 20090506
  Serious: Yes (Disabling, Other)
  Sender: FDA-Public Use
  Company Number: 1-16697348

PATIENT
  Age: 54 Year
  Sex: Male
  Weight: 86.1834 kg

DRUGS (10)
  1. WARFARIN SODIUM [Suspect]
     Indication: CARDIAC FAILURE CONGESTIVE
     Dosage: 7.5 MG 6D/WK, 5MG 1D/WK, ORAL
     Route: 048
     Dates: start: 20070101
  2. SIMVASTATIN [Concomitant]
  3. FUROSEMIDE 50 MG [Concomitant]
  4. DIAZEPAM [Concomitant]
  5. TEMAZEPAM [Concomitant]
  6. DIGOXIN [Concomitant]
  7. CARVEDILOL [Concomitant]
  8. MS CONTIN (MORPHINE SULFATE CONTROLLED-RELEASE) 200 MG [Concomitant]
  9. BENAZEPRIL 40 MG [Concomitant]
  10. SPIRONOLACTONE [Concomitant]

REACTIONS (9)
  - BLEEDING TIME PROLONGED [None]
  - FALL [None]
  - IMPAIRED HEALING [None]
  - JOINT INJURY [None]
  - RASH ERYTHEMATOUS [None]
  - RASH PRURITIC [None]
  - SCRATCH [None]
  - URTICARIA [None]
  - WOUND COMPLICATION [None]
